FAERS Safety Report 13414514 (Version 1)
Quarter: 2017Q2

REPORT INFORMATION
  Report Type: Spontaneous
  Country: US (occurrence: US)
  Receive Date: 20170407
  Receipt Date: 20170407
  Transmission Date: 20170830
  Serious: No
  Sender: FDA-Public Use
  Company Number: US-PERRIGO-17US001173

PATIENT
  Sex: Male
  Weight: 68.27 kg

DRUGS (2)
  1. TRETINOIN. [Suspect]
     Active Substance: TRETINOIN
     Indication: ACNE
     Dosage: ONE APPLICATION, QD AT BEDTIME
     Route: 061
     Dates: start: 2016, end: 201701
  2. SULPHUR [Concomitant]
     Active Substance: SULFUR
     Indication: ACNE
     Dosage: UNKNOWN, UNKNOWN
     Route: 061
     Dates: start: 201612

REACTIONS (1)
  - Application site discomfort [Recovered/Resolved]

NARRATIVE: CASE EVENT DATE: 2016
